FAERS Safety Report 22847304 (Version 3)
Quarter: 2023Q4

REPORT INFORMATION
  Report Type: Spontaneous
  Country: US (occurrence: US)
  Receive Date: 20230822
  Receipt Date: 20231017
  Transmission Date: 20240109
  Serious: No
  Sender: FDA-Public Use
  Company Number: US-ABBVIE-5370999

PATIENT

DRUGS (1)
  1. LASTACAFT [Suspect]
     Active Substance: ALCAFTADINE
     Indication: Product used for unknown indication
     Route: 065

REACTIONS (5)
  - Ocular hyperaemia [Unknown]
  - Dry eye [Unknown]
  - Eye pain [Unknown]
  - Eye pruritus [Unknown]
  - Eye irritation [Unknown]
